FAERS Safety Report 8798352 (Version 4)
Quarter: 2013Q3

REPORT INFORMATION
  Report Type: Spontaneous
  Country: US (occurrence: US)
  Receive Date: 20120920
  Receipt Date: 20130909
  Transmission Date: 20140515
  Serious: Yes (Hospitalization, Other)
  Sender: FDA-Public Use
  Company Number: US-009507513-1209USA004682

PATIENT
  Sex: Female

DRUGS (8)
  1. FOSAMAX [Suspect]
     Indication: OSTEOPOROSIS
     Dosage: 70 MG, QW
     Route: 048
     Dates: start: 2007
  2. FOSAMAX [Suspect]
     Indication: OSTEOPENIA
  3. ALENDRONATE SODIUM [Suspect]
     Indication: OSTEOPOROSIS
     Dosage: 70 MG, QW
     Route: 048
     Dates: start: 20081204, end: 20110120
  4. POSTURE D [Concomitant]
     Dosage: UNK
     Dates: start: 1990
  5. POTASSIUM (UNSPECIFIED) [Concomitant]
     Dosage: UNK
     Dates: start: 2004
  6. LEVOTHYROXINE SODIUM [Concomitant]
     Indication: THYROID DISORDER
     Dosage: UNK
     Dates: start: 2006
  7. LASIX (FUROSEMIDE SODIUM) [Concomitant]
     Indication: FLUID RETENTION
     Dosage: UNK
     Dates: start: 2001
  8. COUMADIN [Concomitant]
     Dosage: UNK
     Dates: start: 2006

REACTIONS (24)
  - Femur fracture [Unknown]
  - Open reduction of fracture [Unknown]
  - Fall [Unknown]
  - Endarterectomy [Unknown]
  - Sleep apnoea syndrome [Unknown]
  - Carotid arteriosclerosis [Unknown]
  - Emphysema [Unknown]
  - Haemoglobin decreased [Unknown]
  - Packed red blood cell transfusion [Unknown]
  - Knee arthroplasty [Unknown]
  - Low turnover osteopathy [Unknown]
  - Peripheral vascular disorder [Unknown]
  - Atrial fibrillation [Unknown]
  - Cardiac ablation [Unknown]
  - Thyroid disorder [Unknown]
  - Hysterectomy [Unknown]
  - Appendicectomy [Unknown]
  - Arthritis [Unknown]
  - Incontinence [Unknown]
  - Dyspnoea [Unknown]
  - Cystopexy [Unknown]
  - Foot operation [Unknown]
  - Device breakage [Unknown]
  - Bladder disorder [Unknown]
